FAERS Safety Report 16473491 (Version 1)
Quarter: 2019Q2

REPORT INFORMATION
  Report Type: Spontaneous
  Country: US (occurrence: US)
  Receive Date: 20190515
  Receipt Date: 20190515
  Transmission Date: 20190711
  Serious: Yes (Death)
  Sender: FDA-Public Use
  Company Number: None

PATIENT
  Age: 89 Year
  Sex: Male

DRUGS (13)
  1. ESBRIET [Suspect]
     Active Substance: PIRFENIDONE
     Indication: IDIOPATHIC PULMONARY FIBROSIS
     Route: 048
     Dates: start: 20190119
  2. FUROSMIDE [Concomitant]
  3. IPRATROPIUM [Concomitant]
     Active Substance: IPRATROPIUM
  4. LEVOTHYROXIN [Concomitant]
     Active Substance: LEVOTHYROXINE
  5. LORAZEPAM. [Concomitant]
     Active Substance: LORAZEPAM
  6. HALOPERIDOL. [Concomitant]
     Active Substance: HALOPERIDOL
  7. POT CHILORIDE [Concomitant]
  8. ATORVASTAIN [Concomitant]
     Active Substance: ATORVASTATIN
  9. MORPHINE SUL [Concomitant]
     Active Substance: MORPHINE SULFATE
  10. HYOSCYAMINE. [Concomitant]
     Active Substance: HYOSCYAMINE
  11. PREDNISONE. [Concomitant]
     Active Substance: PREDNISONE
  12. TRANSDERM-SC DIS [Concomitant]
  13. TRAZODONE [Concomitant]
     Active Substance: TRAZODONE HYDROCHLORIDE

REACTIONS (1)
  - Death [None]

NARRATIVE: CASE EVENT DATE: 20190514
